FAERS Safety Report 20313188 (Version 1)
Quarter: 2022Q1

REPORT INFORMATION
  Report Type: Spontaneous
  Country: FR (occurrence: FR)
  Receive Date: 20220109
  Receipt Date: 20220109
  Transmission Date: 20220423
  Serious: Yes (Hospitalization, Other)
  Sender: FDA-Public Use
  Company Number: None

PATIENT
  Age: 83 Year
  Sex: Female
  Weight: 67.5 kg

DRUGS (2)
  1. ALTEPLASE [Interacting]
     Active Substance: ALTEPLASE
     Indication: Ischaemic stroke
     Dosage: 108 ML, 1X
     Route: 042
     Dates: start: 20211208, end: 20211208
  2. PLAVIX [Interacting]
     Active Substance: CLOPIDOGREL BISULFATE
     Indication: Ischaemic stroke
     Route: 048
     Dates: end: 202112

REACTIONS (2)
  - Haemorrhagic transformation stroke [Recovering/Resolving]
  - Drug interaction [Recovering/Resolving]

NARRATIVE: CASE EVENT DATE: 20211209
